FAERS Safety Report 15182252 (Version 1)
Quarter: 2018Q3

REPORT INFORMATION
  Report Type: Report from Study
  Country: US (occurrence: US)
  Receive Date: 20180723
  Receipt Date: 20180723
  Transmission Date: 20181010
  Serious: No
  Sender: FDA-Public Use
  Company Number: US-AMGEN-USASL2018093488

PATIENT
  Age: 71 Year
  Sex: Male

DRUGS (1)
  1. REPATHA [Suspect]
     Active Substance: EVOLOCUMAB
     Indication: BLOOD CHOLESTEROL INCREASED
     Dosage: 140 MG, Q2WK
     Route: 065
     Dates: end: 20180515

REACTIONS (9)
  - Muscular weakness [Unknown]
  - Pruritus [Unknown]
  - Back pain [Recovering/Resolving]
  - Bloody discharge [Unknown]
  - Mobility decreased [Unknown]
  - Sinus disorder [Unknown]
  - Gastric disorder [Unknown]
  - Arthralgia [Recovering/Resolving]
  - Headache [Unknown]

NARRATIVE: CASE EVENT DATE: 201806
